FAERS Safety Report 8343453-9 (Version None)
Quarter: 2012Q2

REPORT INFORMATION
  Report Type: 
  Country: None (occurrence: None)
  Receive Date: 20120508
  Receipt Date: 20120501
  Transmission Date: 20120825
  Serious: Yes (Other)
  Sender: FDA-Public Use
  Company Number: US-GENZYME-MOZO-1000692

PATIENT

DRUGS (5)
  1. ETOPOSIDE [Concomitant]
     Indication: ACUTE MYELOID LEUKAEMIA
     Dosage: 100 MG/M2, QD, DAYS 4-8
     Route: 042
  2. MOZOBIL [Suspect]
     Indication: ACUTE MYELOID LEUKAEMIA
     Dosage: UNK MCG/KG, UNK, DAYS 4-8
     Route: 042
  3. MITOXANTRONE [Concomitant]
     Indication: ACUTE MYELOID LEUKAEMIA
     Dosage: 8 MG/M2, QD, DAYS 4-8
     Route: 042
  4. CYTARABINE [Concomitant]
     Indication: ACUTE MYELOID LEUKAEMIA
     Dosage: 1000 MG/M2, QD, DAYS 4-8
     Route: 042
  5. GRANULOCYTE COLONY STIMULATING FACTOR [Concomitant]
     Indication: ACUTE MYELOID LEUKAEMIA
     Dosage: UNK MCG/KG, QD, DAYS 1-8
     Route: 058

REACTIONS (2)
  - NAUSEA [None]
  - FEBRILE NEUTROPENIA [None]
